FAERS Safety Report 25747611 (Version 1)
Quarter: 2025Q3

REPORT INFORMATION
  Report Type: Spontaneous
  Country: US (occurrence: US)
  Receive Date: 20250901
  Receipt Date: 20250901
  Transmission Date: 20251021
  Serious: Yes (Disabling, Other)
  Sender: NATCO PHARMA
  Company Number: US-NATCO-000038

PATIENT
  Age: 61 Year
  Sex: Female

DRUGS (1)
  1. PACLITAXEL [Suspect]
     Active Substance: PACLITAXEL
     Indication: Breast cancer metastatic
     Route: 065

REACTIONS (2)
  - Cystoid macular oedema [Recovered/Resolved]
  - Blindness [Not Recovered/Not Resolved]
